FAERS Safety Report 7110696-1 (Version None)
Quarter: 2010Q4

REPORT INFORMATION
  Report Type: 
  Country: None (occurrence: None)
  Receive Date: 20101118
  Receipt Date: 20101116
  Transmission Date: 20110411
  Serious: Yes (Death, Hospitalization)
  Sender: FDA-Public Use
  Company Number: A0883234A

PATIENT
  Age: 75 Year
  Sex: Male

DRUGS (7)
  1. ADVAIR DISKUS 100/50 [Suspect]
     Indication: CHRONIC OBSTRUCTIVE PULMONARY DISEASE
     Route: 055
     Dates: start: 20080101
  2. SPIRIVA [Concomitant]
  3. NEBULIZER [Concomitant]
  4. PLAVIX [Concomitant]
  5. POTASSIUM CHLORIDE [Concomitant]
  6. WATER PILL [Concomitant]
  7. CHOLESTEROL [Concomitant]

REACTIONS (2)
  - CARDIAC FAILURE [None]
  - LUNG DISORDER [None]
